FAERS Safety Report 17011625 (Version 1)
Quarter: 2019Q4

REPORT INFORMATION
  Report Type: Spontaneous
  Country: US (occurrence: US)
  Receive Date: 20191108
  Receipt Date: 20191108
  Transmission Date: 20200122
  Serious: Yes (Hospitalization)
  Sender: FDA-Public Use
  Company Number: US-RITE AID CORPORATION-2076642

PATIENT
  Sex: Female

DRUGS (1)
  1. RITEAID BRAND MUCUS RELIEF DM MAX STRENGTH LIQUID (DEXTROMETHORPHAN HYDROBROMIDE\GUAIFENESIN) [Suspect]
     Active Substance: DEXTROMETHORPHAN HYDROBROMIDE\GUAIFENESIN
     Indication: SECRETION DISCHARGE
     Route: 048
     Dates: start: 20190929, end: 20191006

REACTIONS (1)
  - Palpitations [Recovered/Resolved]
